FAERS Safety Report 24926846 (Version 1)
Quarter: 2025Q1

REPORT INFORMATION
  Report Type: Spontaneous
  Country: RU (occurrence: RU)
  Receive Date: 20250205
  Receipt Date: 20250205
  Transmission Date: 20250409
  Serious: Yes (Hospitalization)
  Sender: ROCHE
  Company Number: RU-ROCHE-10000195836

PATIENT
  Sex: Male

DRUGS (1)
  1. EMICIZUMAB [Suspect]
     Active Substance: EMICIZUMAB
     Indication: Haemorrhage
     Route: 065
     Dates: start: 2019, end: 2020

REACTIONS (6)
  - Haematuria [Unknown]
  - Traumatic haematoma [Unknown]
  - Cholecystectomy [Unknown]
  - Product dispensing error [Unknown]
  - Intentional product misuse [Unknown]
  - Contusion [Unknown]
